FAERS Safety Report 20743927 (Version 1)
Quarter: 2022Q2

REPORT INFORMATION
  Report Type: Spontaneous
  Country: IN (occurrence: IN)
  Receive Date: 20220425
  Receipt Date: 20220425
  Transmission Date: 20220721
  Serious: Yes (Other)
  Sender: FDA-Public Use
  Company Number: IN-Long Grove-000001

PATIENT
  Age: 66 Year
  Sex: Male

DRUGS (1)
  1. TRIAMCINOLONE ACETONIDE [Suspect]
     Active Substance: TRIAMCINOLONE ACETONIDE
     Indication: Lens extraction
     Dosage: 6 MG/0.15 M, SUBCONJUNCTIVAL

REACTIONS (1)
  - Chorioretinopathy [Recovered/Resolved]
